FAERS Safety Report 20042529 (Version 1)
Quarter: 2021Q4

REPORT INFORMATION
  Report Type: Report from Study
  Country: JP (occurrence: JP)
  Receive Date: 20211108
  Receipt Date: 20211108
  Transmission Date: 20220303
  Serious: Yes (Other)
  Sender: FDA-Public Use
  Company Number: JP-RECORDATI RARE DISEASE INC.-2021002800

PATIENT
  Age: 4 Day
  Sex: Male
  Weight: .838 kg

DRUGS (12)
  1. NEOPROFEN [Suspect]
     Active Substance: IBUPROFEN LYSINE
     Indication: Patent ductus arteriosus
     Dosage: 8 MILLIGRAM, QD
     Route: 042
     Dates: start: 20200407, end: 20200407
  2. BIFIDOBACTERIUM LONGUM [Concomitant]
     Active Substance: BIFIDOBACTERIUM LONGUM
     Indication: Dysbiosis
     Dosage: UNK
     Route: 048
     Dates: start: 20200405, end: 20200525
  3. CALCIUM GLUCONATE [Concomitant]
     Active Substance: CALCIUM GLUCONATE
     Indication: Prophylaxis
     Dosage: UNK
     Route: 042
     Dates: start: 20200405, end: 20200411
  4. PLEAMIN P [Concomitant]
     Indication: Nutritional supplementation
     Dosage: UNK
     Route: 042
     Dates: start: 20200405, end: 20200411
  5. DEXTROSE [Concomitant]
     Active Substance: DEXTROSE
     Indication: Supplementation therapy
     Dosage: UNK
     Route: 042
     Dates: start: 20210406, end: 20210411
  6. HEPARIN [Concomitant]
     Active Substance: HEPARIN SODIUM
     Indication: Prophylaxis
     Dosage: UNK
     Route: 042
     Dates: start: 20200405, end: 20200417
  7. SODIUM CHLORIDE [Concomitant]
     Active Substance: SODIUM CHLORIDE
     Indication: Electrolyte substitution therapy
     Dosage: UNK
     Route: 042
     Dates: start: 20200406, end: 20200408
  8. OTSUKA MV [Concomitant]
     Indication: Vitamin supplementation
     Dosage: UNK
     Route: 042
     Dates: start: 20200406, end: 20200411
  9. DEXTROSE [Concomitant]
     Active Substance: DEXTROSE
     Indication: Supplementation therapy
     Dosage: UNK
     Route: 042
     Dates: start: 20200405, end: 20200417
  10. WATER FOR INJECTION [Concomitant]
     Active Substance: WATER
     Indication: Fluid replacement
     Dosage: UNK
     Route: 042
     Dates: start: 20200406, end: 20200411
  11. CAFFEINE [Concomitant]
     Active Substance: CAFFEINE
     Indication: Apnoeic attack
     Dosage: UNK
     Route: 042
     Dates: start: 20200406, end: 20200415
  12. SODIUM PHOSPHATE\SODIUM PHOSPHATE, MONOBASIC, UNSPECIFIED FORM [Concomitant]
     Active Substance: SODIUM PHOSPHATE\SODIUM PHOSPHATE, MONOBASIC, UNSPECIFIED FORM
     Indication: Mineral supplementation
     Dosage: UNK
     Route: 042
     Dates: start: 20200407, end: 20200411

REACTIONS (5)
  - Catheter site vasculitis [Recovered/Resolved]
  - Neutrophil count decreased [Recovered/Resolved]
  - Hypozincaemia [Recovered/Resolved]
  - Pneumonia aspiration [Recovered/Resolved]
  - Inguinal hernia [Recovered/Resolved]

NARRATIVE: CASE EVENT DATE: 20200409
